FAERS Safety Report 25263814 (Version 1)
Quarter: 2025Q2

REPORT INFORMATION
  Report Type: Spontaneous
  Country: IT (occurrence: IT)
  Receive Date: 20250502
  Receipt Date: 20250502
  Transmission Date: 20250717
  Serious: Yes (Other)
  Sender: TEVA
  Company Number: None

PATIENT
  Age: 63 Year
  Sex: Female
  Weight: 51 kg

DRUGS (3)
  1. FLUOROURACIL [Suspect]
     Active Substance: FLUOROURACIL
     Indication: Pancreatic carcinoma
     Dosage: (IT WAS NOT POSSIBLE TO FIND THE DATE OF START OF FIRST ADMINISTRATION): 5-FLUOROURACIL
     Route: 042
     Dates: start: 20250331, end: 20250402
  2. FLUOROURACIL [Suspect]
     Active Substance: FLUOROURACIL
     Indication: Pancreatic carcinoma
     Dosage: (IT WAS NOT POSSIBLE TO FIND THE DATE OF START OF FIRST ADMINISTRATION) BOLUS ADMINISTRATION
     Route: 042
     Dates: start: 20250331, end: 20250331
  3. OXALIPLATIN [Suspect]
     Active Substance: OXALIPLATIN
     Indication: Pancreatic carcinoma
     Dosage: (FIRST ADMINISTRATION DATE COULD NOT BE FOUND)
     Route: 042
     Dates: start: 20250331, end: 20250331

REACTIONS (1)
  - Thrombocytopenia [Recovering/Resolving]

NARRATIVE: CASE EVENT DATE: 20250411
